FAERS Safety Report 17286877 (Version 1)
Quarter: 2020Q1

REPORT INFORMATION
  Report Type: Spontaneous
  Country: ES (occurrence: ES)
  Receive Date: 20200120
  Receipt Date: 20200120
  Transmission Date: 20200409
  Serious: Yes (Hospitalization, Other)
  Sender: FDA-Public Use
  Company Number: ES-ABBVIE-20K-144-3233574-00

PATIENT
  Age: 0 Year
  Sex: Male

DRUGS (4)
  1. GLUTAFERRO [Concomitant]
     Indication: PRODUCT USED FOR UNKNOWN INDICATION
  2. CAFFEINE. [Concomitant]
     Active Substance: CAFFEINE
     Indication: PRODUCT USED FOR UNKNOWN INDICATION
  3. CHOLECALCIFEROL [Concomitant]
     Active Substance: CHOLECALCIFEROL
     Indication: PRODUCT USED FOR UNKNOWN INDICATION
  4. SYNAGIS [Suspect]
     Active Substance: PALIVIZUMAB
     Indication: PREMATURE BABY
     Route: 030
     Dates: start: 20191016, end: 20191218

REACTIONS (5)
  - Dyskinesia [Recovered/Resolved]
  - Clonic convulsion [Recovered/Resolved]
  - Acquired hydrocele [Unknown]
  - Inguinal hernia [Unknown]
  - Spermatic cord disorder [Unknown]

NARRATIVE: CASE EVENT DATE: 2019
